FAERS Safety Report 23567578 (Version 2)
Quarter: 2024Q1

REPORT INFORMATION
  Report Type: Report from Study
  Country: JP (occurrence: JP)
  Receive Date: 20240226
  Receipt Date: 20240318
  Transmission Date: 20240410
  Serious: Yes (Death)
  Sender: FDA-Public Use
  Company Number: JP-002147023-NVSJ2024JP002533

PATIENT
  Age: 59 Year
  Sex: Male
  Weight: 81 kg

DRUGS (1)
  1. ENTRESTO [Suspect]
     Active Substance: SACUBITRIL\VALSARTAN
     Indication: Hypertension
     Dosage: 200 MG, QD
     Route: 048
     Dates: start: 20231024

REACTIONS (1)
  - Aortic dissection [Fatal]

NARRATIVE: CASE EVENT DATE: 20231205
